FAERS Safety Report 6063718-3 (Version None)
Quarter: 2009Q1

REPORT INFORMATION
  Report Type: 
  Country: None (occurrence: None)
  Receive Date: 20090130
  Receipt Date: 20090121
  Transmission Date: 20090719
  Serious: Yes (Hospitalization, Other)
  Sender: FDA-Public Use
  Company Number: CHPA2008US23534

PATIENT
  Age: 35 Year
  Sex: Female

DRUGS (1)
  1. THERAFLU SEVERE COLD (NCH) (PHENIRAMINE MALEATE, PHENYLEPHRINE HYDROCH [Suspect]
     Indication: NASOPHARYNGITIS
     Dosage: 1 DF, QHS, ORAL
     Route: 048
     Dates: start: 20081216, end: 20081216

REACTIONS (7)
  - CHEST DISCOMFORT [None]
  - DRUG HYPERSENSITIVITY [None]
  - DYSPNOEA [None]
  - ELECTROCARDIOGRAM ABNORMAL [None]
  - HEART RATE IRREGULAR [None]
  - PAIN IN EXTREMITY [None]
  - PRODUCT QUALITY ISSUE [None]
